FAERS Safety Report 9729703 (Version 2)
Quarter: 2013Q4

REPORT INFORMATION
  Report Type: Spontaneous
  Country: US (occurrence: US)
  Receive Date: 20131204
  Receipt Date: 20131204
  Transmission Date: 20140711
  Serious: No
  Sender: FDA-Public Use
  Company Number: US-GILEAD-2009-0020992

PATIENT
  Sex: Male
  Weight: 80.29 kg

DRUGS (5)
  1. LETAIRIS [Suspect]
     Indication: PULMONARY ARTERIAL HYPERTENSION
     Route: 048
     Dates: start: 20090216
  2. FUROSEMIDE [Concomitant]
  3. METHIMAZOLE [Concomitant]
  4. KLOR-CON [Concomitant]
  5. ASPIRIN [Concomitant]

REACTIONS (3)
  - Adverse drug reaction [Unknown]
  - Dyspnoea [Recovering/Resolving]
  - Oedema peripheral [Recovering/Resolving]
